FAERS Safety Report 5164961-8 (Version None)
Quarter: 2006Q4

REPORT INFORMATION
  Report Type: 
  Country: None (occurrence: None)
  Receive Date: 20061127
  Receipt Date: 20061113
  Transmission Date: 20070319
  Serious: Yes (Hospitalization, Disabling)
  Sender: FDA-Public Use
  Company Number: CERZ-11401

PATIENT
  Age: 44 Year
  Sex: Female

DRUGS (1)
  1. CEREZYME [Suspect]
     Indication: GAUCHER'S DISEASE
     Dates: start: 19980429, end: 20010101

REACTIONS (10)
  - ANEURYSM [None]
  - BLINDNESS UNILATERAL [None]
  - BLOOD PRESSURE ABNORMAL [None]
  - CONVULSION [None]
  - FATIGUE [None]
  - GASTROINTESTINAL DISORDER [None]
  - HYPERTENSION [None]
  - OPTIC NERVE DISORDER [None]
  - PRURITUS [None]
  - RASH PAPULAR [None]
